FAERS Safety Report 7482024-3 (Version None)
Quarter: 2011Q2

REPORT INFORMATION
  Report Type: 
  Country: None (occurrence: None)
  Receive Date: 20110516
  Receipt Date: 20110502
  Transmission Date: 20111010
  Serious: Yes (Hospitalization)
  Sender: FDA-Public Use
  Company Number: CA-JNJFOC-20110201665

PATIENT
  Sex: Female
  Weight: 38 kg

DRUGS (11)
  1. METHOTREXATE [Concomitant]
     Route: 058
  2. REMICADE [Suspect]
     Route: 042
     Dates: start: 20110104
  3. REMICADE [Suspect]
     Route: 042
     Dates: start: 20110304
  4. CARBOCAL NOS [Concomitant]
     Dosage: DOSE 400 UM/500 MG TWICE DAILY
  5. PANCRELIPASE [Concomitant]
  6. REMICADE [Suspect]
     Indication: CROHN'S DISEASE
     Route: 042
     Dates: start: 20101222
  7. SYNTHROID [Concomitant]
     Route: 065
  8. FOLIC ACID [Concomitant]
  9. OMEPRAZOLE [Concomitant]
     Route: 065
  10. ACTONEL [Concomitant]
     Dosage: WEEKLY
     Route: 065
  11. VITAMIN B-12 [Concomitant]
     Dosage: MONTHLY
     Route: 065

REACTIONS (1)
  - PANCREATITIS RELAPSING [None]
